FAERS Safety Report 16849829 (Version 1)
Quarter: 2019Q3

REPORT INFORMATION
  Report Type: Report from Study
  Country: US (occurrence: US)
  Receive Date: 20190925
  Receipt Date: 20190925
  Transmission Date: 20191005
  Serious: Yes (Other)
  Sender: FDA-Public Use
  Company Number: US-SA-2019SA262550

PATIENT
  Age: 13 Year
  Sex: Male

DRUGS (1)
  1. IMIGLUCERASE [Suspect]
     Active Substance: IMIGLUCERASE
     Indication: GAUCHER^S DISEASE
     Dosage: 1600.00 Q2
     Route: 042
     Dates: start: 20090824, end: 20181127

REACTIONS (3)
  - Thrombocytopenia [Unknown]
  - Condition aggravated [Unknown]
  - Device related infection [Unknown]

NARRATIVE: CASE EVENT DATE: 20181101
